FAERS Safety Report 8702279 (Version 3)
Quarter: 2012Q4

REPORT INFORMATION
  Report Type: 
  Country: US (occurrence: US)
  Receive Date: 20120803
  Receipt Date: 20120925
  Transmission Date: 20130627
  Serious: Yes (Other)
  Sender: FDA-Public Use
  Company Number: US-ELI_LILLY_AND_COMPANY-US201207008932

PATIENT
  Sex: Male

DRUGS (2)
  1. EFFIENT [Suspect]
     Indication: STENT PLACEMENT
     Dosage: 60 mg, single
     Route: 048
     Dates: start: 201207
  2. ASPIRIN [Concomitant]
     Dosage: UNK, unknown
     Route: 065

REACTIONS (5)
  - Thrombosis in device [Recovered/Resolved with Sequelae]
  - Acute myocardial infarction [Recovered/Resolved with Sequelae]
  - Diabetic ketoacidosis [Recovered/Resolved with Sequelae]
  - Epistaxis [Unknown]
  - Treatment noncompliance [Unknown]
